FAERS Safety Report 17563757 (Version 2)
Quarter: 2020Q2

REPORT INFORMATION
  Report Type: Spontaneous
  Country: US (occurrence: US)
  Receive Date: 20200319
  Receipt Date: 20200404
  Transmission Date: 20200713
  Serious: No
  Sender: FDA-Public Use
  Company Number: US-AMGEN INC.-USASP2020044958

PATIENT
  Age: 47 Year
  Sex: Female
  Weight: 58.96 kg

DRUGS (2)
  1. BOTOX [Concomitant]
     Active Substance: ONABOTULINUMTOXINA
     Indication: MIGRAINE
     Dosage: UNK UNK, Q3MO
     Dates: start: 20180511
  2. AIMOVIG [Suspect]
     Active Substance: ERENUMAB-AOOE
     Indication: PRODUCT USED FOR UNKNOWN INDICATION
     Dosage: 140 MILLIGRAM
     Route: 065
     Dates: start: 201905

REACTIONS (2)
  - Vulvovaginal pain [Not Recovered/Not Resolved]
  - Urethral pain [Not Recovered/Not Resolved]

NARRATIVE: CASE EVENT DATE: 2019
